FAERS Safety Report 12887490 (Version 2)
Quarter: 2016Q4

REPORT INFORMATION
  Report Type: Report from Study
  Country: US (occurrence: US)
  Receive Date: 20161026
  Receipt Date: 20161123
  Transmission Date: 20170207
  Serious: Yes (Hospitalization, Other)
  Sender: FDA-Public Use
  Company Number: US-GILEAD-2016-0240162

PATIENT
  Age: 63 Year
  Sex: Male

DRUGS (2)
  1. RANOLAZINE [Suspect]
     Active Substance: RANOLAZINE
     Indication: ANGINA PECTORIS
     Dosage: 500 MG, BID
     Route: 048
     Dates: start: 201511, end: 201607
  2. RANOLAZINE [Suspect]
     Active Substance: RANOLAZINE
     Dosage: 1000 MG, UNK
     Route: 048
     Dates: start: 201607

REACTIONS (4)
  - Cerebrovascular accident [Unknown]
  - Chest pain [Unknown]
  - Drug dose omission [Unknown]
  - Speech disorder [Not Recovered/Not Resolved]
